FAERS Safety Report 8213780-4 (Version None)
Quarter: 2012Q1

REPORT INFORMATION
  Report Type: 
  Country: None (occurrence: None)
  Receive Date: 20120316
  Receipt Date: 20120306
  Transmission Date: 20120608
  Serious: Yes (Other)
  Sender: FDA-Public Use
  Company Number: AR-AMGEN-ARGSP2012015464

PATIENT
  Age: 71 Year
  Sex: Female

DRUGS (2)
  1. ENBREL [Suspect]
     Indication: PSORIATIC ARTHROPATHY
     Dosage: 50 MG, EVERY 10 DAYS
     Route: 058
     Dates: start: 20100920
  2. METHOTREXATE [Concomitant]
     Dosage: UNK

REACTIONS (1)
  - PSORIATIC ARTHROPATHY [None]
